FAERS Safety Report 6940844-5 (Version None)
Quarter: 2010Q3

REPORT INFORMATION
  Report Type: 
  Country: None (occurrence: None)
  Receive Date: 20100824
  Receipt Date: 20100824
  Transmission Date: 20110219
  Serious: Yes (Hospitalization)
  Sender: FDA-Public Use
  Company Number: None

PATIENT
  Sex: Male
  Weight: 71.7 kg

DRUGS (1)
  1. CYCLOSPORINE [Suspect]
     Dosage: 125MG IV
     Route: 042
     Dates: start: 20100711, end: 20100712

REACTIONS (2)
  - HALLUCINATION [None]
  - VISUAL IMPAIRMENT [None]
